FAERS Safety Report 5165293-4 (Version None)
Quarter: 2006Q4

REPORT INFORMATION
  Report Type: 
  Country: None (occurrence: None)
  Receive Date: 20061124
  Receipt Date: 20061114
  Transmission Date: 20070319
  Serious: Yes (Other)
  Sender: FDA-Public Use
  Company Number: 2006142380

PATIENT
  Age: 63 Year
  Sex: Male

DRUGS (2)
  1. AMLODIPINE [Suspect]
     Indication: HYPERTENSION
     Dates: start: 20060824
  2. ACE INHIBITORS AND DIURETICS (ACE INHIBITORS AND DIURETICS) [Concomitant]

REACTIONS (1)
  - RECTAL HAEMORRHAGE [None]
